FAERS Safety Report 6344165-3 (Version None)
Quarter: 2009Q3

REPORT INFORMATION
  Report Type: 
  Country: None (occurrence: None)
  Receive Date: 20090908
  Receipt Date: 20090828
  Transmission Date: 20100115
  Serious: Yes (Other)
  Sender: FDA-Public Use
  Company Number: AU-SANOFI-SYNTHELABO-A01200906647

PATIENT
  Sex: Male
  Weight: 91 kg

DRUGS (15)
  1. COLGOUT [Concomitant]
     Indication: GOUT
     Dosage: UNK
     Route: 065
  2. CABASER [Concomitant]
     Indication: DRUG USE FOR UNKNOWN INDICATION
     Dosage: UNK
     Route: 065
  3. AVAPRO [Concomitant]
     Indication: HYPERTENSION
     Route: 048
  4. ATENOLOL [Concomitant]
     Indication: DRUG USE FOR UNKNOWN INDICATION
     Dosage: UNK
     Route: 065
  5. DIMEREL [Concomitant]
     Indication: DRUG USE FOR UNKNOWN INDICATION
     Dosage: UNK
     Route: 065
  6. MOBIC [Concomitant]
     Indication: DRUG USE FOR UNKNOWN INDICATION
     Dosage: UNK
     Route: 065
  7. VYTORIN [Concomitant]
     Indication: DYSLIPIDAEMIA
     Dosage: 10 MG EZETIMIBE + 40 MG SIMVASTATIN) UNK
     Route: 048
  8. METFORMIN HCL [Concomitant]
     Indication: TYPE 2 DIABETES MELLITUS
     Dosage: UNK
     Route: 065
  9. TRANSIDERM NITRO PATCH [Concomitant]
     Indication: DRUG USE FOR UNKNOWN INDICATION
     Dosage: UNK
     Route: 065
  10. ASPIRIN [Concomitant]
     Indication: ANGIOPATHY
     Route: 048
  11. PLAVIX [Suspect]
     Indication: MYOCARDIAL ISCHAEMIA
     Route: 048
     Dates: start: 20070101
  12. TRAMADOL HCL [Concomitant]
     Indication: PAIN
     Dosage: 150 MG
     Route: 048
  13. ACETAMINOPHEN [Concomitant]
     Indication: PAIN
     Route: 048
  14. METFORMIN HCL [Concomitant]
     Indication: DIABETES MELLITUS
     Route: 048
  15. ZYLOPRIM [Concomitant]
     Indication: DRUG USE FOR UNKNOWN INDICATION
     Dosage: UNK
     Route: 065

REACTIONS (4)
  - CAROTID ARTERY OCCLUSION [None]
  - DRUG INEFFECTIVE [None]
  - PENILE ARTERY OCCLUSION [None]
  - PERIPHERAL ARTERIAL OCCLUSIVE DISEASE [None]
